FAERS Safety Report 8404651-9 (Version None)
Quarter: 2012Q2

REPORT INFORMATION
  Report Type: 
  Country: None (occurrence: None)
  Receive Date: 20120601
  Receipt Date: 20120524
  Transmission Date: 20120825
  Serious: Yes (Hospitalization)
  Sender: FDA-Public Use
  Company Number: US-VERTEX PHARMACEUTICALS INC.-AE-2012-005340

PATIENT
  Sex: Female

DRUGS (6)
  1. RIBAVIRIN [Concomitant]
     Indication: HEPATITIS C
     Route: 048
     Dates: start: 20120217, end: 20120412
  2. PEGASYS [Concomitant]
     Indication: HEPATITIS C
     Route: 058
     Dates: start: 20120217, end: 20120412
  3. AVELOX [Concomitant]
     Dates: start: 20120405
  4. INCIVEK [Suspect]
     Indication: HEPATITIS C
     Route: 048
     Dates: start: 20120217, end: 20120412
  5. SYNTHROID [Concomitant]
  6. TEMAZEPAM [Concomitant]

REACTIONS (1)
  - PANCREATITIS [None]
